FAERS Safety Report 23722367 (Version 3)
Quarter: 2025Q2

REPORT INFORMATION
  Report Type: Spontaneous
  Country: US (occurrence: US)
  Receive Date: 20240409
  Receipt Date: 20250604
  Transmission Date: 20250716
  Serious: No
  Sender: NOVEN
  Company Number: US-NOVEN PHARMACEUTICALS, INC.-2024-NOV-US000287

PATIENT
  Age: 17 Year
  Sex: Female

DRUGS (4)
  1. XELSTRYM [Suspect]
     Active Substance: DEXTROAMPHETAMINE
     Indication: Attention deficit hyperactivity disorder
     Route: 062
     Dates: start: 202402, end: 20240226
  2. XELSTRYM [Suspect]
     Active Substance: DEXTROAMPHETAMINE
     Route: 062
     Dates: start: 202402
  3. BUSPIRONE [Suspect]
     Active Substance: BUSPIRONE HYDROCHLORIDE
     Indication: Product used for unknown indication
     Route: 065
     Dates: start: 20240207, end: 20240226
  4. DESVENLAFAXINE [Suspect]
     Active Substance: DESVENLAFAXINE
     Indication: Product used for unknown indication
     Route: 065
     Dates: start: 20240207, end: 20240226

REACTIONS (5)
  - Miliaria [Unknown]
  - Application site pruritus [Unknown]
  - Application site burn [Unknown]
  - Insomnia [Unknown]
  - Off label use [Recovered/Resolved]

NARRATIVE: CASE EVENT DATE: 20240201
